FAERS Safety Report 8490968-9 (Version None)
Quarter: 2012Q3

REPORT INFORMATION
  Report Type: 
  Country: None (occurrence: None)
  Receive Date: 20120706
  Receipt Date: 20120702
  Transmission Date: 20120928
  Serious: Yes (Hospitalization)
  Sender: FDA-Public Use
  Company Number: US-BAYER-2011-096128

PATIENT
  Age: 24 Year
  Sex: Female

DRUGS (13)
  1. MORPHINE SULFATE [Concomitant]
  2. LORAZEPAM [Concomitant]
     Indication: ANXIETY
  3. YASMIN [Suspect]
     Dosage: UNK
     Route: 048
     Dates: start: 20090709, end: 20091017
  4. IBUPROFEN (ADVIL) [Concomitant]
     Indication: CHEST PAIN
     Dosage: UNK
     Route: 048
  5. DROSPIRENONE AND ETHINYL ESTRADIOL [Suspect]
     Dosage: UNK
     Route: 048
     Dates: start: 20090709, end: 20091017
  6. DEPO-PROVERA [Concomitant]
  7. PRILOSEC [Concomitant]
     Dosage: 20 MG, UNK
     Route: 048
     Dates: start: 20091017
  8. FLUCONAZOLE [Concomitant]
     Dosage: 150 MILLIGRAMS, ONE TIME DOSE
     Route: 048
     Dates: start: 20091014
  9. AUGMENTIN '125' [Concomitant]
     Indication: EAR INFECTION
     Dosage: 875 MG, BID
     Route: 048
     Dates: start: 20091009
  10. PERCOCET [Concomitant]
     Indication: ANALGESIC THERAPY
  11. CELEXA [Concomitant]
     Dosage: 40 MG, ONCE
     Dates: start: 20091017
  12. YAZ [Suspect]
     Dosage: UNK
     Route: 048
     Dates: start: 20090709, end: 20091017
  13. INHALER [Concomitant]
     Dosage: UNK

REACTIONS (6)
  - EMOTIONAL DISTRESS [None]
  - INJURY [None]
  - PAIN [None]
  - GENERAL PHYSICAL HEALTH DETERIORATION [None]
  - ANXIETY [None]
  - PULMONARY EMBOLISM [None]
